FAERS Safety Report 18090941 (Version 1)
Quarter: 2020Q3

REPORT INFORMATION
  Report Type: Spontaneous
  Country: US (occurrence: US)
  Receive Date: 20200729
  Receipt Date: 20200729
  Transmission Date: 20201103
  Serious: Yes (Other)
  Sender: FDA-Public Use
  Company Number: None

PATIENT
  Age: 59 Year
  Sex: Female
  Weight: 63 kg

DRUGS (2)
  1. CITRICAL VITAMIN [Concomitant]
  2. NEXT ADVANCED ANTIBACTERIAL HAND SANITIZER [Suspect]
     Active Substance: ALCOHOL
     Indication: INFECTION PROPHYLAXIS
     Dosage: ?          QUANTITY:8 OUNCE(S);?
     Route: 061
     Dates: start: 20200501, end: 20200525

REACTIONS (3)
  - Vision blurred [None]
  - Blindness [None]
  - Macular hole [None]

NARRATIVE: CASE EVENT DATE: 20200501
